FAERS Safety Report 9736240 (Version 1)
Quarter: 2013Q4

REPORT INFORMATION
  Report Type: Spontaneous
  Country: CH (occurrence: CH)
  Receive Date: 20131206
  Receipt Date: 20131206
  Transmission Date: 20140711
  Serious: Yes (Other)
  Sender: FDA-Public Use
  Company Number: CH-MYLANLABS-2013S1026798

PATIENT
  Age: 68 Year
  Sex: 0

DRUGS (3)
  1. CLOZAPINE [Suspect]
     Route: 065
  2. CLOZAPINE [Interacting]
     Dosage: DOSE REDUCTION OF 50%
     Route: 065
  3. FLUVOXAMINE [Interacting]
     Route: 065

REACTIONS (3)
  - Ileus paralytic [Unknown]
  - Toxicity to various agents [Unknown]
  - Drug interaction [Unknown]
